FAERS Safety Report 8180152-0 (Version None)
Quarter: 2012Q1

REPORT INFORMATION
  Report Type: 
  Country: None (occurrence: None)
  Receive Date: 20120229
  Receipt Date: 20120215
  Transmission Date: 20120608
  Serious: Yes (Hospitalization)
  Sender: FDA-Public Use
  Company Number: DSM-2012-00214

PATIENT
  Age: 76 Year
  Sex: Female

DRUGS (9)
  1. ASPIRIN [Concomitant]
  2. FOSTER (100/6 (BECLOMETASONE DIPROPIONATE, FORMOTEROL FUMARATE) [Concomitant]
  3. SIMVASTATIN [Concomitant]
  4. ALPRAZOLAM [Concomitant]
  5. LISINOPRIL [Concomitant]
  6. RASILEZ (ALISKIFREN FUMARATE) (ALISKIREN FUMARATE) [Suspect]
     Indication: HYPERTENSION
     Dosage: 300 MG (300 MG, 1 IN 1 D)
     Dates: start: 20091101, end: 20120101
  7. METFORMIN HCL [Concomitant]
  8. PANTOPRAZOLE [Concomitant]
  9. OPENVAS PLUS (HYDROCHLOROTHIAZIDE, OLMESARTAN MEDOXOMIL) (TABLET) [Suspect]
     Indication: HYPERTENSION
     Dosage: 1 DOSAGE FORMS (1 DOSAGE FORMS, 1 IN1 D), ORAL
     Route: 048
     Dates: start: 20091101, end: 20120101

REACTIONS (1)
  - OROPHARYNGEAL PAIN [None]
